FAERS Safety Report 5926226-3 (Version None)
Quarter: 2008Q4

REPORT INFORMATION
  Report Type: 
  Country: None (occurrence: None)
  Receive Date: 20081017
  Receipt Date: 20081003
  Transmission Date: 20090506
  Serious: Yes (Other)
  Sender: FDA-Public Use
  Company Number: PHO-2008-050

PATIENT
  Sex: 0

DRUGS (2)
  1. PHOTOFRIN [Suspect]
     Indication: GLIOBLASTOMA MULTIFORME
     Dosage: 2 MG/KG IV 5 COURSES OF PDT (DURING SURGERY, 72H, 96H, 120H, AND 144H AFTER SURGERY)
     Route: 042
  2. 5 AMINO-LEVULENIC-ACID [Suspect]
     Dosage: 20 MG/KG ORAL
     Route: 048

REACTIONS (1)
  - DEEP VEIN THROMBOSIS [None]
